FAERS Safety Report 10356883 (Version 2)
Quarter: 2014Q3

REPORT INFORMATION
  Report Type: Spontaneous
  Country: US (occurrence: US)
  Receive Date: 20140801
  Receipt Date: 20140819
  Transmission Date: 20150326
  Serious: Yes (Disabling, Other)
  Sender: FDA-Public Use
  Company Number: PHEH2014US015186

PATIENT
  Age: 45 Year
  Sex: Female
  Weight: 52.52 kg

DRUGS (24)
  1. THYROXINE [Concomitant]
     Active Substance: LEVOTHYROXINE
     Dosage: 100 MWF
     Dates: start: 20070614
  2. MINERAL [Concomitant]
     Dosage: 1 DF, QD
     Route: 048
  3. RADIOACTIVE IODINE TREATMENT [Concomitant]
     Dosage: 101 MCI, UNK
     Dates: start: 200603
  4. DRISDOL [Concomitant]
     Active Substance: ERGOCALCIFEROL
     Dosage: UNK UKN, UNK
  5. SYNTHROID [Concomitant]
     Active Substance: LEVOTHYROXINE SODIUM
     Indication: POST PROCEDURAL HYPOTHYROIDISM
     Dosage: UNK UKN, UNK
  6. SYNTHROID [Concomitant]
     Active Substance: LEVOTHYROXINE SODIUM
     Dosage: 88 UG, 1 TABLET
     Route: 048
  7. THYROXINE [Concomitant]
     Active Substance: LEVOTHYROXINE
     Dosage: 75 DAILY
  8. MULTIVITAMIN                       /00097801/ [Concomitant]
     Active Substance: VITAMINS
     Indication: VITAMIN D DEFICIENCY
     Dosage: 1 DF, QD
     Route: 048
  9. SODIUM IODIDE I-131 [Concomitant]
     Active Substance: SODIUM IODIDE I-131
     Dosage: UNK UKN, UNK
  10. SYNTHROID [Concomitant]
     Active Substance: LEVOTHYROXINE SODIUM
     Dosage: DECREASED DOSE
     Dates: start: 20110111
  11. SYNTHROID [Concomitant]
     Active Substance: LEVOTHYROXINE SODIUM
     Dosage: 75 UG, 1 TABLET
     Route: 048
  12. THYROXINE [Concomitant]
     Active Substance: LEVOTHYROXINE
     Dosage: 112 MWF
  13. RECLAST [Suspect]
     Active Substance: ZOLEDRONIC ACID
     Indication: OSTEOPOROSIS
     Dosage: 5 MG /100 ML
     Route: 042
     Dates: start: 201110
  14. THYROXINE [Concomitant]
     Active Substance: LEVOTHYROXINE
     Dosage: 75 MWF
     Dates: start: 20080429
  15. CALCIUM CITRATE [Concomitant]
     Active Substance: CALCIUM CITRATE
     Indication: OSTEOPENIA
     Dosage: 2 DF, BID
     Route: 048
  16. TYLENOL [Concomitant]
     Active Substance: ACETAMINOPHEN
     Indication: ALLERGIC SINUSITIS
     Dosage: UNK UKN, UNK
  17. SODIUM IODIDE I-131 [Concomitant]
     Active Substance: SODIUM IODIDE I-131
     Dosage: 101 MCI, UNK
     Dates: start: 20060316
  18. THYROXINE [Concomitant]
     Active Substance: LEVOTHYROXINE
     Dosage: 50 TWICE WEEK
  19. THYROXINE [Concomitant]
     Active Substance: LEVOTHYROXINE
     Dosage: 100 MWF ELSE 88
  20. THYROXINE [Concomitant]
     Active Substance: LEVOTHYROXINE
     Dosage: 88 MWF
     Dates: start: 20071128
  21. IRON [Concomitant]
     Active Substance: IRON
     Dosage: UNK UKN, UNK
  22. RECLAST [Suspect]
     Active Substance: ZOLEDRONIC ACID
     Dosage: 5 MG /100 ML
     Route: 042
     Dates: start: 201210
  23. SYNTHROID [Concomitant]
     Active Substance: LEVOTHYROXINE SODIUM
     Dosage: DOSE INCREASED
     Dates: start: 20140113
  24. CYTOMEL [Concomitant]
     Active Substance: LIOTHYRONINE SODIUM
     Dosage: LOW DOSE
     Dates: start: 20110111

REACTIONS (18)
  - Thirst [Unknown]
  - Hypoaesthesia [Recovering/Resolving]
  - Neuropathy peripheral [Unknown]
  - Heart rate increased [Unknown]
  - Neck pain [Unknown]
  - Insomnia [Unknown]
  - Hyperhidrosis [Unknown]
  - Sialoadenitis [Unknown]
  - Mass [Unknown]
  - Weight decreased [Unknown]
  - Muscular weakness [Unknown]
  - Fatigue [Unknown]
  - Small fibre neuropathy [Recovering/Resolving]
  - Dry mouth [Unknown]
  - Onychoclasis [Unknown]
  - Nausea [Unknown]
  - Thyroglobulin increased [Unknown]
  - Myalgia [Unknown]

NARRATIVE: CASE EVENT DATE: 20111101
